FAERS Safety Report 20688553 (Version 1)
Quarter: 2022Q2

REPORT INFORMATION
  Report Type: Other
  Country: None (occurrence: JP)
  Receive Date: 20220408
  Receipt Date: 20220408
  Transmission Date: 20220720
  Serious: Yes (Hospitalization, Other)
  Sender: FDA-Public Use
  Company Number: JP-Vista Pharmaceuticals Inc.-2127510

PATIENT
  Age: 27 Year
  Sex: Female

DRUGS (3)
  1. SULFAMETHOXAZOLE AND TRIMETHOPRIM [Suspect]
     Active Substance: SULFAMETHOXAZOLE\TRIMETHOPRIM
     Indication: Wound infection
     Route: 048
  2. MEROPENEM [Concomitant]
     Active Substance: MEROPENEM
     Route: 042
  3. LINEZOLID [Concomitant]
     Active Substance: LINEZOLID
     Route: 042

REACTIONS (1)
  - Eosinophilic pneumonia [Recovered/Resolved]
